FAERS Safety Report 5144951-1 (Version None)
Quarter: 2006Q4

REPORT INFORMATION
  Report Type: 
  Country: None (occurrence: None)
  Receive Date: 20061107
  Receipt Date: 20061009
  Transmission Date: 20070319
  Serious: Yes (Life-Threatening, Hospitalization, Other)
  Sender: FDA-Public Use
  Company Number: US-GLAXOSMITHKLINE-A0622897A

PATIENT
  Age: 62 Year
  Sex: Male

DRUGS (14)
  1. TUMS E-X TABLETS, TROPICAL FRUIT [Suspect]
     Indication: GASTRIC DISORDER
     Route: 048
  2. HUMALOG [Concomitant]
  3. VYTORIN [Concomitant]
  4. ATENOLOL [Concomitant]
  5. VERAPAMIL [Concomitant]
  6. LASIX [Concomitant]
  7. IMDUR [Concomitant]
  8. ELAVIL [Concomitant]
  9. RESTORIL [Concomitant]
  10. FLEXERIL [Concomitant]
  11. VICODIN [Concomitant]
  12. UNSPECIFIED MEDICATION [Concomitant]
  13. CALCIUM [Concomitant]
  14. ZAROXOLYN [Concomitant]

REACTIONS (8)
  - BLOOD CALCIUM INCREASED [None]
  - CONFUSIONAL STATE [None]
  - DYSPNOEA [None]
  - HYPERGLYCAEMIA [None]
  - INTENTIONAL DRUG MISUSE [None]
  - MALAISE [None]
  - MENTAL IMPAIRMENT [None]
  - VOMITING [None]
